FAERS Safety Report 6126383-2 (Version None)
Quarter: 2009Q1

REPORT INFORMATION
  Report Type: 
  Country: None (occurrence: None)
  Receive Date: 20090318
  Receipt Date: 20090304
  Transmission Date: 20090719
  Serious: Yes (Hospitalization)
  Sender: FDA-Public Use
  Company Number: 09P-082-0560683-00

PATIENT
  Age: 2 Month
  Sex: Male

DRUGS (2)
  1. SYNAGIS [Suspect]
     Indication: RESPIRATORY SYNCYTIAL VIRUS INFECTION
     Dosage: 54 MG, ONCE, INTRAMUSCULAR
     Route: 030
     Dates: start: 20090204, end: 20090204
  2. MEDICINES FOR HEART DEFECT [Concomitant]

REACTIONS (1)
  - BRONCHIOLITIS [None]
